FAERS Safety Report 7266303-0 (Version None)
Quarter: 2011Q1

REPORT INFORMATION
  Report Type: 
  Country: None (occurrence: None)
  Receive Date: 20110131
  Receipt Date: 20110125
  Transmission Date: 20110831
  Serious: Yes (Other)
  Sender: FDA-Public Use
  Company Number: JP-PFIZER INC-2010157236

PATIENT
  Age: 74 Year
  Sex: Male
  Weight: 50 kg

DRUGS (8)
  1. ZYVOX [Suspect]
     Indication: STAPHYLOCOCCAL INFECTION
  2. OMEPRAL [Concomitant]
     Indication: MELAENA
  3. ZOVIRAX [Concomitant]
     Dosage: UNK
     Route: 065
     Dates: start: 20101124
  4. TARGOCID [Concomitant]
     Dosage: UNK
     Route: 065
     Dates: start: 20101122, end: 20101124
  5. ZYVOX [Suspect]
     Indication: PNEUMONIA STAPHYLOCOCCAL
     Dosage: 600 MG, 2X/DAY
     Route: 041
     Dates: start: 20101118, end: 20101121
  6. CEFOCEF [Concomitant]
     Indication: CHOLECYSTITIS
     Dosage: UNK
     Route: 041
     Dates: start: 20101109, end: 20101126
  7. OMEPRAL [Concomitant]
     Indication: GASTROINTESTINAL HAEMORRHAGE
     Dosage: UNK
     Route: 042
     Dates: start: 20101116, end: 20101126
  8. RANITIDINE [Concomitant]
     Indication: STRESS ULCER
     Dosage: UNK
     Route: 041
     Dates: start: 20101109, end: 20101115

REACTIONS (1)
  - SKIN EROSION [None]
